FAERS Safety Report 7395242-X (Version None)
Quarter: 2011Q2

REPORT INFORMATION
  Report Type: 
  Country: None (occurrence: None)
  Receive Date: 20110405
  Receipt Date: 20110323
  Transmission Date: 20111010
  Serious: Yes (Death)
  Sender: FDA-Public Use
  Company Number: US-CELGENEUS-163-21880-11031868

PATIENT
  Sex: Female

DRUGS (10)
  1. COUMADIN [Concomitant]
     Route: 065
  2. LASIX [Concomitant]
     Route: 065
  3. GLIPIZIDE [Concomitant]
     Route: 065
  4. METFORMIN [Concomitant]
     Route: 065
  5. REVLIMID [Suspect]
     Indication: MYELODYSPLASTIC SYNDROME
     Dosage: 5 MILLIGRAM
     Route: 048
     Dates: start: 20100301, end: 20110313
  6. VITAMIN D [Concomitant]
     Route: 065
  7. CARDIZEM [Concomitant]
     Route: 065
  8. DIGOXIN [Concomitant]
     Route: 065
  9. EYE VITAMINS [Concomitant]
     Route: 065
  10. LANTUS [Concomitant]
     Route: 065

REACTIONS (1)
  - DEATH [None]
